FAERS Safety Report 8093737-7 (Version None)
Quarter: 2012Q1

REPORT INFORMATION
  Report Type: 
  Country: None (occurrence: None)
  Receive Date: 20120129
  Receipt Date: 20111024
  Transmission Date: 20120608
  Serious: No
  Sender: FDA-Public Use
  Company Number: US-ABBOTT-11P-163-0868828-00

PATIENT
  Sex: Female
  Weight: 124.85 kg

DRUGS (5)
  1. NAPROXEN (ALEVE) [Concomitant]
     Indication: PAIN
  2. HUMIRA [Suspect]
     Dates: start: 20111023
  3. HUMIRA [Suspect]
     Indication: ANKYLOSING SPONDYLITIS
     Dates: start: 20080201, end: 20111023
  4. LISINOPRIL [Concomitant]
     Indication: HYPERTENSION
  5. OXYGEN [Concomitant]
     Indication: SLEEP APNOEA SYNDROME
     Dosage: CPAP

REACTIONS (5)
  - ARTHRALGIA [None]
  - DRUG EFFECT DECREASED [None]
  - MUSCULOSKELETAL STIFFNESS [None]
  - BLOOD PRESSURE INCREASED [None]
  - BACK PAIN [None]
